FAERS Safety Report 6522848-X (Version None)
Quarter: 2009Q4

REPORT INFORMATION
  Report Type: 
  Country: None (occurrence: None)
  Receive Date: 20091230
  Receipt Date: 20091223
  Transmission Date: 20100525
  Serious: Yes (Hospitalization)
  Sender: FDA-Public Use
  Company Number: US-GILEAD-2009-0026202

PATIENT
  Sex: Male

DRUGS (3)
  1. LETAIRIS [Suspect]
     Indication: PULMONARY HYPERTENSION
     Route: 048
     Dates: start: 20080305
  2. COUMADIN [Concomitant]
     Indication: ANTICOAGULANT THERAPY
  3. REVATIO [Concomitant]
     Indication: PULMONARY HYPERTENSION

REACTIONS (1)
  - PULMONARY EMBOLISM [None]
